FAERS Safety Report 24941659 (Version 3)
Quarter: 2025Q1

REPORT INFORMATION
  Report Type: Report from Study
  Country: AT (occurrence: AT)
  Receive Date: 20250207
  Receipt Date: 20250213
  Transmission Date: 20250409
  Serious: Yes (Hospitalization, Other)
  Sender: REGENERON
  Company Number: AT-BAYER-2025A014053

PATIENT
  Age: 83 Year
  Sex: Male

DRUGS (1)
  1. EYLEA HD [Suspect]
     Active Substance: AFLIBERCEPT
     Indication: Neovascular age-related macular degeneration
     Dates: start: 20250115

REACTIONS (8)
  - Neovascular age-related macular degeneration [Recovering/Resolving]
  - Non-infectious endophthalmitis [Recovering/Resolving]
  - Vitreous haze [Recovering/Resolving]
  - Visual acuity reduced [Unknown]
  - Multiple use of single-use product [Unknown]
  - Anterior chamber cell [Recovering/Resolving]
  - Vitreal cells [Recovering/Resolving]
  - Vitreous floaters [Recovering/Resolving]

NARRATIVE: CASE EVENT DATE: 20250117
